FAERS Safety Report 7480940-X (Version None)
Quarter: 2011Q2

REPORT INFORMATION
  Report Type: 
  Country: None (occurrence: None)
  Receive Date: 20110506
  Receipt Date: 20110429
  Transmission Date: 20111010
  Serious: Yes (Hospitalization)
  Sender: FDA-Public Use
  Company Number: 1000019422

PATIENT
  Age: 89 Year
  Sex: Female

DRUGS (4)
  1. ASPIRIN [Concomitant]
  2. SULPIRID (SULPIRIDE) [Concomitant]
  3. MEMANTINE [Suspect]
     Indication: DEMENTIA ALZHEIMER'S TYPE
     Dosage: 10 MG (10 MJG, 1 IN 1 D)
     Dates: start: 20060101, end: 20110101
  4. NEUROLEP (CARBAMAZEPINE) [Concomitant]

REACTIONS (7)
  - PNEUMONIA [None]
  - DIZZINESS [None]
  - HYPOTENSION [None]
  - CARDIAC DISORDER [None]
  - FEAR [None]
  - AGITATION [None]
  - FALL [None]
